FAERS Safety Report 14917472 (Version 1)
Quarter: 2018Q2

REPORT INFORMATION
  Report Type: Spontaneous
  Country: FR (occurrence: FR)
  Receive Date: 20180521
  Receipt Date: 20180521
  Transmission Date: 20180711
  Serious: Yes (Other)
  Sender: FDA-Public Use
  Company Number: FR-MERCK KGAA-2048093

PATIENT
  Sex: Female
  Weight: 125 kg

DRUGS (1)
  1. NOVOTHYROX [Suspect]
     Active Substance: LEVOTHYROXINE SODIUM
     Indication: POST PROCEDURAL HYPOTHYROIDISM
     Dates: end: 2017

REACTIONS (19)
  - Blood cholesterol increased [Recovered/Resolved]
  - Gait disturbance [None]
  - Glycosylated haemoglobin increased [None]
  - Blood glucose increased [None]
  - Dyspnoea at rest [None]
  - Blood potassium increased [Recovered/Resolved]
  - Asthenia [Recovered/Resolved]
  - Aggression [None]
  - Fatigue [None]
  - Nausea [None]
  - Arthralgia [None]
  - Dizziness [Recovered/Resolved]
  - Headache [Recovered/Resolved]
  - Loss of personal independence in daily activities [None]
  - Mood altered [None]
  - Tension [None]
  - Social avoidant behaviour [None]
  - Gamma-glutamyltransferase increased [None]
  - Insomnia [Recovered/Resolved]

NARRATIVE: CASE EVENT DATE: 2017
